FAERS Safety Report 11555175 (Version 4)
Quarter: 2016Q2

REPORT INFORMATION
  Report Type: Spontaneous
  Country: BR (occurrence: BR)
  Receive Date: 20150925
  Receipt Date: 20160504
  Transmission Date: 20160815
  Serious: No
  Sender: FDA-Public Use
  Company Number: BR-PFIZER INC-2015313563

PATIENT
  Age: 60 Year
  Sex: Female
  Weight: 76 kg

DRUGS (5)
  1. LYRICA [Suspect]
     Active Substance: PREGABALIN
     Indication: ARTHRALGIA
  2. CITONEURIN 5000 [Concomitant]
     Indication: ANGIOPLASTY
     Dosage: 1 DF, 1 INJECTION EVERY MONTH
     Dates: start: 2012
  3. LYRICA [Suspect]
     Active Substance: PREGABALIN
     Indication: BONE PAIN
     Dosage: 75 MG, 1 CAPSULE EVERY 12 HOURS
     Route: 048
     Dates: start: 2013, end: 2013
  4. DIPROSPAN [Concomitant]
     Active Substance: BETAMETHASONE DIPROPIONATE\BETAMETHASONE SODIUM PHOSPHATE
     Dosage: UNK, AS NEEDED
     Dates: start: 1990
  5. OMEPRAZOLE. [Concomitant]
     Active Substance: OMEPRAZOLE
     Indication: ABDOMINAL DISCOMFORT
     Dosage: UNK
     Dates: start: 2000

REACTIONS (4)
  - Abdominal pain upper [Recovered/Resolved]
  - Sedation [Recovered/Resolved]
  - Product use issue [Unknown]
  - Restless legs syndrome [Recovered/Resolved]

NARRATIVE: CASE EVENT DATE: 2013
